FAERS Safety Report 5142527-3 (Version None)
Quarter: 2006Q4

REPORT INFORMATION
  Report Type: 
  Country: None (occurrence: None)
  Receive Date: 20061027
  Receipt Date: 20061016
  Transmission Date: 20070319
  Serious: Yes (Hospitalization, Other)
  Sender: FDA-Public Use
  Company Number: 2006112920

PATIENT
  Age: 49 Year
  Sex: Male

DRUGS (7)
  1. LIPITOR [Suspect]
     Indication: DYSLIPIDAEMIA
     Dosage: 20 MG (20 MG, 1 IN 1 D), ORAL
     Route: 048
  2. ACETAMINOPHEN [Suspect]
     Indication: CORONARY ARTERY DISEASE
  3. ASPIRIN [Concomitant]
  4. ATACAND [Concomitant]
  5. CELEXA [Concomitant]
  6. ZYRTEC [Concomitant]
  7. PLAVIX [Concomitant]

REACTIONS (7)
  - ACQUIRED CARDIAC SEPTAL DEFECT [None]
  - CHEST DISCOMFORT [None]
  - CORONARY ARTERY OCCLUSION [None]
  - HEPATIC STEATOSIS [None]
  - HEPATITIS [None]
  - LEUKOCYTOSIS [None]
  - VENTRICULAR HYPOKINESIA [None]
